FAERS Safety Report 11362960 (Version 1)
Quarter: 2015Q3

REPORT INFORMATION
  Report Type: Spontaneous
  Country: US (occurrence: US)
  Receive Date: 20150810
  Receipt Date: 20150810
  Transmission Date: 20151125
  Serious: Yes (Hospitalization)
  Sender: FDA-Public Use
  Company Number: US-BAUSCH-BL-2015-010224

PATIENT
  Sex: Female

DRUGS (1)
  1. XENAZINE [Suspect]
     Active Substance: TETRABENAZINE
     Indication: CHOREA
     Route: 048
     Dates: start: 20150302

REACTIONS (6)
  - Gastrointestinal obstruction [Recovering/Resolving]
  - Cardiac failure congestive [Recovering/Resolving]
  - Clostridium difficile infection [Recovering/Resolving]
  - Insomnia [Unknown]
  - Therapeutic response unexpected [Unknown]
  - Anxiety [Unknown]

NARRATIVE: CASE EVENT DATE: 2015
